FAERS Safety Report 23789261 (Version 3)
Quarter: 2024Q2

REPORT INFORMATION
  Report Type: Spontaneous
  Country: US (occurrence: US)
  Receive Date: 20240426
  Receipt Date: 20240527
  Transmission Date: 20240716
  Serious: No
  Sender: FDA-Public Use
  Company Number: US-PFIZER INC-202400092617

PATIENT
  Age: 5 Year
  Sex: Female

DRUGS (2)
  1. GENOTROPIN [Suspect]
     Active Substance: SOMATROPIN
     Dosage: 0.3MG ALTERNATING WITH 0.4MG 7 DAYS/WEEK SUBCUTANEOUS
     Route: 058
  2. GENOTROPIN [Suspect]
     Active Substance: SOMATROPIN
     Dosage: 0.3MG ALTERNATING WITH 0.4MG 7 DAYS/WEEK SUBCUTANEOUS
     Route: 058

REACTIONS (4)
  - Drug dose omission by device [Not Recovered/Not Resolved]
  - Product preparation error [Unknown]
  - Product administered at inappropriate site [Unknown]
  - Poor quality device used [Unknown]

NARRATIVE: CASE EVENT DATE: 20240401
